FAERS Safety Report 4546061-0 (Version None)
Quarter: 2005Q1

REPORT INFORMATION
  Report Type: 
  Country: None (occurrence: None)
  Receive Date: 20050103
  Receipt Date: 20041222
  Transmission Date: 20050727
  Serious: Yes (Death)
  Sender: FDA-Public Use
  Company Number: 2004UW24608

PATIENT
  Age: 80 Year
  Sex: Female

DRUGS (7)
  1. CRESTOR [Suspect]
     Dates: start: 20040901, end: 20041101
  2. PROPRANOLOL HYDROCHLORIDE [Concomitant]
  3. GLYBURIDE [Concomitant]
  4. FUROSEMIDE [Concomitant]
  5. SPIRONOLACTONE [Concomitant]
  6. PLAVIX [Concomitant]
  7. BENICAR [Concomitant]

REACTIONS (11)
  - CORONARY ARTERY OCCLUSION [None]
  - DIALYSIS [None]
  - FAT EMBOLISM [None]
  - HAEMODIALYSIS [None]
  - NEPHROSCLEROSIS [None]
  - OBSTRUCTION [None]
  - POST PROCEDURAL COMPLICATION [None]
  - RENAL ARTERIOSCLEROSIS [None]
  - RENAL DISORDER [None]
  - RENAL FAILURE ACUTE [None]
  - RENAL TUBULAR ATROPHY [None]
